FAERS Safety Report 5988788-X (Version None)
Quarter: 2008Q4

REPORT INFORMATION
  Report Type: 
  Country: None (occurrence: None)
  Receive Date: 20081208
  Receipt Date: 20081208
  Transmission Date: 20090506
  Serious: Yes (Hospitalization)
  Sender: FDA-Public Use
  Company Number: None

PATIENT
  Age: 58 Year
  Sex: Female
  Weight: 60.782 kg

DRUGS (2)
  1. ROBITUSSIN COUGH [Suspect]
     Indication: ASTHMA
     Dosage: 2 TEASPOONS EVENINGS PO
     Route: 048
     Dates: start: 20081112, end: 20081116
  2. ROBITUSSIN COUGH [Suspect]
     Indication: COUGH
     Dosage: 2 TEASPOONS EVENINGS PO
     Route: 048
     Dates: start: 20081112, end: 20081116

REACTIONS (7)
  - BLOOD PRESSURE INCREASED [None]
  - CEREBROVASCULAR ACCIDENT [None]
  - DEAFNESS UNILATERAL [None]
  - DYSKINESIA [None]
  - MYOCARDIAL INFARCTION [None]
  - SUICIDAL IDEATION [None]
  - TINNITUS [None]
